FAERS Safety Report 7142439 (Version 7)
Quarter: 2013Q1

REPORT INFORMATION
  Report Type: Spontaneous
  Country: GB (occurrence: GB)
  Receive Date: 20091007
  Receipt Date: 20130322
  Transmission Date: 20140127
  Serious: Yes (Hospitalization, Other)
  Sender: FDA-Public Use
  Company Number: PHHY2009GB41091

PATIENT
  Age: 60 None
  Sex: Male

DRUGS (32)
  1. CLOZARIL [Suspect]
     Indication: SCHIZOPHRENIA
     Dosage: 400 MG, QD
     Route: 048
     Dates: start: 20020305
  2. DIAZEPAM [Concomitant]
     Dosage: 6 MG, PRN
     Route: 048
  3. PAROXETINE [Concomitant]
     Indication: COUGH
     Dosage: 40 MG, UNK
     Route: 048
  4. PAROXETINE [Concomitant]
     Dosage: 20 ML, QD
     Route: 048
     Dates: start: 20130218
  5. PAROXETINE [Concomitant]
     Dosage: 20 ML, QD
     Dates: start: 20130318
  6. BECLOMETASONE [Concomitant]
     Indication: COUGH
     Dosage: 1 DF (SPRAY TWICE INTO EACH NOSTRIL), BID
     Dates: start: 20130204, end: 20130301
  7. BECLOMETASONE [Concomitant]
     Dosage: 1 DF(SPRAY TWICE INTO EACH NOSTRIL)  , BID
     Dates: start: 20130304
  8. DOCUSOL [Concomitant]
     Dosage: 10 ML, TID
     Route: 048
     Dates: start: 20130204
  9. DOCUSOL [Concomitant]
     Dosage: 10 ML, TID
     Dates: start: 20130207
  10. DOCUSOL [Concomitant]
     Dosage: 10 ML, TID
     Dates: start: 20130304
  11. DOCUSOL [Concomitant]
     Dosage: 10 ML, TID
     Route: 048
     Dates: start: 20130318
  12. FERROUS FUMARATE [Concomitant]
     Dosage: 10 ML, QD
     Route: 048
     Dates: start: 20130204
  13. FERROUS FUMARATE [Concomitant]
     Dosage: 10 ML, QD
     Dates: start: 20130218
  14. FERROUS FUMARATE [Concomitant]
     Dosage: 10 ML, QD
     Route: 048
     Dates: start: 20130227
  15. ZOLPIDEM [Concomitant]
     Dosage: 1 DF, IN EVENING
     Route: 048
     Dates: start: 20130204
  16. ZOLPIDEM [Concomitant]
     Dosage: 1 DF, IN EVENING
     Dates: start: 20130304
  17. SODIUM CITRATE [Concomitant]
     Dosage: PRN
     Route: 054
     Dates: start: 20130205, end: 20130305
  18. RANITIDINE [Concomitant]
     Dosage: 10 ML, BID
     Route: 048
     Dates: start: 20130207
  19. RANITIDINE [Concomitant]
     Dosage: 10 ML, BID
     Route: 048
     Dates: start: 20130227
  20. RANITIDINE [Concomitant]
     Dosage: 10 ML, BID
     Route: 048
     Dates: start: 20130309
  21. WATER FOR IRRIG [Concomitant]
     Dosage: 100 ML,
     Dates: start: 20130207, end: 20130309
  22. WATER FOR IRRIG [Concomitant]
  23. CLOBETASONE [Concomitant]
     Dosage: APPLY THICKLY TO THE AFFECTED AREA, QD
     Dates: start: 20130214, end: 20130314
  24. LACTULOSE [Concomitant]
     Dosage: 15 ML, QD
     Dates: start: 20130218
  25. LACTULOSE [Concomitant]
     Dates: end: 20130307
  26. TWOCAL HN [Concomitant]
     Dosage: PRN
     Dates: start: 20130225
  27. AMOXICILLIN [Concomitant]
     Indication: LOWER RESPIRATORY TRACT INFECTION
     Dosage: 5 ML, TID
     Dates: start: 20130304, end: 20130317
  28. GLANDOSANE [Concomitant]
     Dosage: 2 DF, PRN
     Dates: start: 20130304
  29. SALBUTAMOL [Concomitant]
     Dosage: 1 DF(4 TIMES A DAY)
     Dates: start: 20130311
  30. SENNA [Concomitant]
     Dosage: 10 ML, QHS
     Route: 048
     Dates: start: 20130311
  31. MACROGOL [Concomitant]
     Dosage: PRN
     Dates: start: 20130318
  32. TIOTROPIUM [Concomitant]
     Dosage: 1 DF, DAILY
     Dates: start: 20130318

REACTIONS (10)
  - Cholelithiasis [Unknown]
  - Prostatic disorder [Unknown]
  - Eosinophil count decreased [Unknown]
  - Jaundice [Unknown]
  - White blood cell count increased [Recovering/Resolving]
  - Lower respiratory tract infection [Unknown]
  - Neutrophil count increased [Recovering/Resolving]
  - Platelet count decreased [Unknown]
  - Pneumonia aspiration [Unknown]
  - Dysphagia [Not Recovered/Not Resolved]
